FAERS Safety Report 8167541-5 (Version None)
Quarter: 2012Q1

REPORT INFORMATION
  Report Type: 
  Country: None (occurrence: None)
  Receive Date: 20120227
  Receipt Date: 20120220
  Transmission Date: 20120608
  Serious: Yes (Hospitalization)
  Sender: FDA-Public Use
  Company Number: DE-UCBSA-051344

PATIENT
  Sex: Female
  Weight: 72 kg

DRUGS (13)
  1. METHOTREXATE SODIUM [Concomitant]
     Dosage: 7.5 MG QS
     Dates: start: 20110727, end: 20111026
  2. FOLIC ACID [Concomitant]
     Indication: RHEUMATOID ARTHRITIS
     Dates: start: 20111027
  3. FOLIC ACID [Concomitant]
     Dosage: 5 MG QS
     Dates: start: 20110205, end: 20110707
  4. METHOTREXATE SODIUM [Concomitant]
     Indication: RHEUMATOID ARTHRITIS
     Dosage: 10 MG QS
     Dates: start: 20111123
  5. IBUPROFEN [Concomitant]
     Indication: RHEUMATOID ARTHRITIS
     Dates: start: 20111026
  6. FOLIC ACID [Concomitant]
     Dosage: 5 MG QS
     Dates: start: 20110728
  7. PANTOPRAZOLE [Concomitant]
     Dosage: 10 MG QS (QUANTITY SUFFICIENT)
     Dates: start: 20110627
  8. CERTOLIZUMAB PEGOL [Suspect]
     Route: 058
     Dates: start: 20110621, end: 20111109
  9. METHOTREXATE SODIUM [Concomitant]
     Dosage: 10 MG QS
     Dates: start: 20111026, end: 20111114
  10. CERTOLIZUMAB PEGOL [Suspect]
     Indication: RHEUMATOID ARTHRITIS
     Dosage: NO OF DOSES RECEIVED -APPROXIMATELY 19
     Route: 058
     Dates: start: 20111123, end: 20120125
  11. CALCIUM D3 [Concomitant]
     Indication: OSTEOPOROSIS PROPHYLAXIS
     Dates: start: 20110308
  12. PREDNISONE TAB [Concomitant]
     Indication: RHEUMATOID ARTHRITIS
     Dates: start: 20110301
  13. LEVOTHYROXINE SODIUM [Concomitant]
     Indication: HYPERTHYROIDISM
     Dates: start: 20050101

REACTIONS (1)
  - TUBERCULOSIS [None]
